FAERS Safety Report 18286923 (Version 1)
Quarter: 2020Q3

REPORT INFORMATION
  Report Type: Spontaneous
  Country: US (occurrence: US)
  Receive Date: 20200921
  Receipt Date: 20200921
  Transmission Date: 20201103
  Serious: No
  Sender: FDA-Public Use
  Company Number: US-BRISTOL-MYERS SQUIBB COMPANY-BMS-2020-076221

PATIENT
  Sex: Male

DRUGS (1)
  1. KENALOG?40 [Suspect]
     Active Substance: TRIAMCINOLONE ACETONIDE
     Indication: DERMATITIS CONTACT
     Dosage: 40 MILLIGRAM, QD
     Route: 065

REACTIONS (2)
  - Anxiety [Unknown]
  - Insomnia [Unknown]
